FAERS Safety Report 9033392 (Version 6)
Quarter: 2014Q1

REPORT INFORMATION
  Report Type: Spontaneous
  Country: US (occurrence: US)
  Receive Date: 20130128
  Receipt Date: 20140122
  Transmission Date: 20141002
  Serious: Yes (Hospitalization, Disabling, Other)
  Sender: FDA-Public Use
  Company Number: US-009507513-1301USA010613

PATIENT
  Sex: Female
  Weight: 63.4 kg

DRUGS (5)
  1. FOSAMAX [Suspect]
     Indication: OSTEOPENIA
     Dosage: 70 MG, QW
     Route: 048
     Dates: start: 1999, end: 20110221
  2. FOSAMAX [Suspect]
     Indication: OSTEOPOROSIS
     Dosage: 10 MG, DAILY
     Route: 048
  3. ALENDRONATE SODIUM [Suspect]
     Dosage: 70 MG, QW
     Route: 048
  4. FOSAMAX PLUS D [Suspect]
     Dosage: 2800 IU / 70 MG
     Route: 048
  5. FLUTICASONE PROPIONATE [Concomitant]
     Indication: HYPERSENSITIVITY

REACTIONS (37)
  - Femur fracture [Unknown]
  - Intramedullary rod insertion [Unknown]
  - Femur fracture [Unknown]
  - Open reduction of fracture [Unknown]
  - Basal cell carcinoma [Unknown]
  - Skin neoplasm excision [Unknown]
  - Female sterilisation [Unknown]
  - Renal failure [Unknown]
  - Bone fragmentation [Unknown]
  - Dental implantation [Unknown]
  - Dental implantation [Unknown]
  - Wrist fracture [Unknown]
  - Hypertension [Unknown]
  - Osteoporosis [Unknown]
  - Bursitis [Unknown]
  - Muscular weakness [Unknown]
  - Fall [Unknown]
  - Arthritis [Unknown]
  - Arthritis [Unknown]
  - Bursitis [Unknown]
  - Anaemia postoperative [Unknown]
  - Wound drainage [Unknown]
  - Anxiety [Unknown]
  - Osteoarthritis [Unknown]
  - Anaemia [Unknown]
  - Atrioventricular block first degree [Unknown]
  - Vulvovaginal swelling [Unknown]
  - Fall [Unknown]
  - Formication [Unknown]
  - Drug administration error [Unknown]
  - Oral herpes [Unknown]
  - Granuloma [Unknown]
  - Limb asymmetry [Unknown]
  - Fungal infection [Unknown]
  - Adverse event [Unknown]
  - Pyrexia [Unknown]
  - Oedema peripheral [Unknown]
